FAERS Safety Report 13674205 (Version 1)
Quarter: 2017Q2

REPORT INFORMATION
  Report Type: Spontaneous
  Country: GB (occurrence: GB)
  Receive Date: 20170621
  Receipt Date: 20170621
  Transmission Date: 20170830
  Serious: Yes (Hospitalization)
  Sender: FDA-Public Use
  Company Number: GB-TEVA-780349ACC

PATIENT
  Age: 69 Year
  Sex: Female

DRUGS (16)
  1. DOCUSATE [Concomitant]
     Active Substance: DOCUSATE
     Dosage: 400 MILLIGRAM DAILY;
  2. LORAZEPAM. [Concomitant]
     Active Substance: LORAZEPAM
     Dosage: HALF A TABLET OR ONE TABLET AT NIGHT.
  3. LANSOPRAZOLE. [Suspect]
     Active Substance: LANSOPRAZOLE
  4. LEVOTHYROXINE. [Concomitant]
     Active Substance: LEVOTHYROXINE
     Dosage: 50 MICROGRAM DAILY;
  5. DESMOPRESSIN [Suspect]
     Active Substance: DESMOPRESSIN
     Dosage: 200 MICROGRAM DAILY;
     Dates: start: 20170310
  6. SERETIDE [Concomitant]
     Active Substance: FLUTICASONE PROPIONATE\SALMETEROL XINAFOATE
     Dosage: 2 DOSAGE FORMS DAILY;
  7. AIROMIR [Concomitant]
     Active Substance: ALBUTEROL SULFATE
     Dosage: AUTOHALER 4 TIMES A DAY AS REQUIRED.
  8. MORPHINE [Concomitant]
     Active Substance: MORPHINE
     Dosage: 10MG/5ML
  9. MST CONTINUS [Concomitant]
     Active Substance: MORPHINE SULFATE
  10. PREGABALIN. [Concomitant]
     Active Substance: PREGABALIN
     Dosage: 150 MILLIGRAM DAILY;
  11. ORAMORPH [Concomitant]
     Active Substance: MORPHINE SULFATE
     Dosage: 10MG/5ML ORAL SOLUTION 2.5 TO 5ML, 4 TO 6 HOURLY
  12. TIOTROPIUM [Concomitant]
     Active Substance: TIOTROPIUM
     Dosage: 18 MICROGRAM DAILY;
  13. ZOPICLONE [Concomitant]
     Active Substance: ZOPICLONE
     Dosage: 3.75 MILLIGRAM DAILY;
  14. SENNA [Concomitant]
     Active Substance: SENNA LEAF\SENNOSIDES\SENNOSIDES A AND B
     Dosage: 15 MILLIGRAM DAILY;
  15. OXYBUTYNIN [Concomitant]
     Active Substance: OXYBUTYNIN
     Dosage: 5 MILLIGRAM DAILY;
  16. PARACETAMOL [Concomitant]
     Active Substance: ACETAMINOPHEN
     Dosage: FOUR TIMES A DAY.

REACTIONS (1)
  - Hyponatraemia [Recovered/Resolved]

NARRATIVE: CASE EVENT DATE: 20170316
